FAERS Safety Report 11504305 (Version 2)
Quarter: 2017Q4

REPORT INFORMATION
  Report Type: Spontaneous
  Country: ES (occurrence: ES)
  Receive Date: 20150915
  Receipt Date: 20171103
  Transmission Date: 20180320
  Serious: Yes (Hospitalization)
  Sender: FDA-Public Use
  Company Number: ES-009507513-1509ESP005375

PATIENT
  Age: 50 Year
  Sex: Female
  Weight: 70 kg

DRUGS (1)
  1. PROSCAR [Suspect]
     Active Substance: FINASTERIDE
     Indication: ANDROGENETIC ALOPECIA
     Dosage: 5MG/DAY FOR 10 MONTHS
     Route: 048
     Dates: start: 20141001, end: 20150806

REACTIONS (2)
  - Intraductal proliferative breast lesion [Recovered/Resolved]
  - Oestradiol increased [Unknown]

NARRATIVE: CASE EVENT DATE: 20150803
